FAERS Safety Report 9665193 (Version 1)
Quarter: 2013Q4

REPORT INFORMATION
  Report Type: Spontaneous
  Country: US (occurrence: US)
  Receive Date: 20131101
  Receipt Date: 20131101
  Transmission Date: 20140711
  Serious: No
  Sender: FDA-Public Use
  Company Number: US-TEVA-438205USA

PATIENT
  Age: 27 Year
  Sex: Female
  Weight: 59.47 kg

DRUGS (9)
  1. PARAGARD 380A [Suspect]
     Indication: CONTRACEPTION
     Route: 015
     Dates: start: 20110810, end: 20131005
  2. PLAQUENIL [Concomitant]
     Indication: RHEUMATOID ARTHRITIS
  3. CELLCEPT [Concomitant]
     Indication: SYSTEMIC LUPUS ERYTHEMATOSUS
  4. LISINOPRIL [Concomitant]
     Indication: HYPERTENSION
  5. PREDNISONE [Concomitant]
     Indication: SYSTEMIC LUPUS ERYTHEMATOSUS
  6. DILANTIN [Concomitant]
     Indication: CONVULSION
  7. LABETALOL [Concomitant]
     Indication: HYPERTENSION
  8. PROCARDIA [Concomitant]
     Indication: HYPERTENSION
  9. LEXAPRO [Concomitant]
     Indication: DEPRESSION

REACTIONS (1)
  - Device expulsion [Recovered/Resolved]
